FAERS Safety Report 20569132 (Version 1)
Quarter: 2022Q1

REPORT INFORMATION
  Report Type: Report from Study
  Country: US (occurrence: US)
  Receive Date: 20220308
  Receipt Date: 20220308
  Transmission Date: 20220423
  Serious: Yes (Hospitalization, Other)
  Sender: FDA-Public Use
  Company Number: US-ABBVIE-22K-163-4304536-00

PATIENT
  Sex: Female

DRUGS (1)
  1. HUMIRA [Suspect]
     Active Substance: ADALIMUMAB
     Indication: Rheumatoid arthritis
     Route: 058

REACTIONS (6)
  - Pulmonary arterial hypertension [Unknown]
  - Cataract [Unknown]
  - Coronary artery occlusion [Unknown]
  - Hospitalisation [Unknown]
  - Autoimmune disorder [Unknown]
  - Rheumatoid arthritis [Not Recovered/Not Resolved]
